FAERS Safety Report 9885676 (Version 2)
Quarter: 2014Q3

REPORT INFORMATION
  Report Type: Spontaneous
  Country: CA (occurrence: CA)
  Receive Date: 20140210
  Receipt Date: 20140919
  Transmission Date: 20150326
  Serious: Yes (Other)
  Sender: FDA-Public Use
  Company Number: CA-ABBVIE-14P-028-1199253-00

PATIENT
  Age: 61 Year
  Sex: Female
  Weight: 60 kg

DRUGS (3)
  1. LIPIDIL EZ [Suspect]
     Active Substance: FENOFIBRATE
     Route: 048
     Dates: start: 20130102, end: 20130501
  2. URSODEOXYCHOLIC ACID [Concomitant]
     Active Substance: URSODIOL
     Indication: PRODUCT USED FOR UNKNOWN INDICATION
     Route: 048
  3. LIPIDIL EZ [Suspect]
     Active Substance: FENOFIBRATE
     Indication: BILIARY CIRRHOSIS PRIMARY
     Route: 048
     Dates: start: 20101215, end: 20110629

REACTIONS (6)
  - Ascites [Unknown]
  - Hepatic failure [Unknown]
  - Hepatic encephalopathy [Unknown]
  - Condition aggravated [Unknown]
  - Hepatic cirrhosis [Unknown]
  - Blood bilirubin increased [Unknown]
